FAERS Safety Report 19881425 (Version 1)
Quarter: 2021Q3

REPORT INFORMATION
  Report Type: Spontaneous
  Country: DE (occurrence: DE)
  Receive Date: 20210924
  Receipt Date: 20210924
  Transmission Date: 20211014
  Serious: Yes (Other)
  Sender: FDA-Public Use
  Company Number: DE-MYLANLABS-2021M1064630

PATIENT
  Age: 1 Day
  Sex: Male
  Weight: 2.62 kg

DRUGS (3)
  1. RISPERIDON [Concomitant]
     Active Substance: RISPERIDONE
     Indication: TOURETTE^S DISORDER
     Dosage: 1 [MG/D (0?0?1) ]
     Route: 064
     Dates: start: 20200116, end: 20200326
  2. ARIPIPRAZOLE. [Suspect]
     Active Substance: ARIPIPRAZOLE
     Indication: TOURETTE^S DISORDER
     Dosage: 20 [MG/D (20?0?0) ]
     Route: 064
     Dates: start: 20200116, end: 20201016
  3. RIVOTRIL [Suspect]
     Active Substance: CLONAZEPAM
     Indication: TOURETTE^S DISORDER
     Dosage: 1.25 [MG/D (0.5?0.5?0.25) ]
     Route: 064
     Dates: start: 20200116, end: 20201016

REACTIONS (3)
  - Congenital inguinal hernia [Unknown]
  - Small for dates baby [Unknown]
  - Foetal exposure during pregnancy [Recovered/Resolved]

NARRATIVE: CASE EVENT DATE: 20201016
